FAERS Safety Report 7505557-X (Version None)
Quarter: 2011Q2

REPORT INFORMATION
  Report Type: 
  Country: None (occurrence: None)
  Receive Date: 20110525
  Receipt Date: 20110516
  Transmission Date: 20111010
  Serious: Yes (Death, Life-Threatening, Hospitalization)
  Sender: FDA-Public Use
  Company Number: DL2011-0406

PATIENT
  Age: 16 Year
  Sex: Female

DRUGS (2)
  1. MIFEGYNE TABLETS, 200 MG (EXELGYN LABS) [Suspect]
     Indication: ABORTION INDUCED
     Dosage: 200 MG, ORAL
     Route: 048
  2. MISOPROSTOL [Suspect]
     Dosage: 800 MCG, VAGINAL
     Route: 067

REACTIONS (10)
  - SYNCOPE [None]
  - CULTURE POSITIVE [None]
  - ABDOMINAL PAIN [None]
  - HAEMOGLOBIN DECREASED [None]
  - LEUKOCYTOSIS [None]
  - HAEMOCONCENTRATION [None]
  - HYSTERECTOMY [None]
  - SEPSIS [None]
  - METABOLIC ACIDOSIS [None]
  - CLOSTRIDIUM TEST POSITIVE [None]
